FAERS Safety Report 25063129 (Version 1)
Quarter: 2025Q1

REPORT INFORMATION
  Report Type: Spontaneous
  Country: US (occurrence: US)
  Receive Date: 20250311
  Receipt Date: 20250311
  Transmission Date: 20250409
  Serious: No
  Sender: KARYOPHARM THERAPEUTICS
  Company Number: US-KARYOPHARM-2025KPT000244

PATIENT

DRUGS (10)
  1. XPOVIO [Suspect]
     Active Substance: SELINEXOR
     Indication: Plasma cell myeloma
     Dosage: 60 MG, WEEKLY
     Route: 048
  2. POMALYST [Concomitant]
     Active Substance: POMALIDOMIDE
  3. OLANZAPINE [Concomitant]
     Active Substance: OLANZAPINE
  4. PREGABALIN [Concomitant]
     Active Substance: PREGABALIN
  5. ONDANSETRON [Concomitant]
     Active Substance: ONDANSETRON
  6. ATORVASTATIN [Concomitant]
     Active Substance: ATORVASTATIN
  7. XARELTO [Concomitant]
     Active Substance: RIVAROXABAN
  8. DEXAMETHASONE [Concomitant]
     Active Substance: DEXAMETHASONE
  9. FAMCICLOVIR [Concomitant]
     Active Substance: FAMCICLOVIR
  10. ACETAMINOPHEN\HYDROCODONE [Concomitant]
     Active Substance: ACETAMINOPHEN\HYDROCODONE

REACTIONS (2)
  - Laboratory test abnormal [Unknown]
  - White blood cell count decreased [Recovered/Resolved]
